FAERS Safety Report 5651946-8 (Version None)
Quarter: 2008Q1

REPORT INFORMATION
  Report Type: 
  Country: None (occurrence: None)
  Receive Date: 20080131
  Receipt Date: 20071030
  Transmission Date: 20080703
  Serious: No
  Sender: FDA-Public Use
  Company Number: US200710007616

PATIENT
  Age: 50 Year
  Sex: Female

DRUGS (4)
  1. BYETTA [Suspect]
     Indication: TYPE 1 DIABETES MELLITUS
     Dosage: 5 MEQ, 2/D, SUBCUTANEOUS ; 10 MEQ, 2/D, SUBCUTANEOUS ; 5 MEQ, 2/D, SUBCUTANEOUS
     Route: 058
     Dates: start: 20070601
  2. BYETTA [Suspect]
     Indication: TYPE 1 DIABETES MELLITUS
     Dosage: 5 MEQ, 2/D, SUBCUTANEOUS ; 10 MEQ, 2/D, SUBCUTANEOUS ; 5 MEQ, 2/D, SUBCUTANEOUS
     Route: 058
     Dates: start: 20070701
  3. BYETTA [Suspect]
     Indication: TYPE 1 DIABETES MELLITUS
     Dosage: 5 MEQ, 2/D, SUBCUTANEOUS ; 10 MEQ, 2/D, SUBCUTANEOUS ; 5 MEQ, 2/D, SUBCUTANEOUS
     Route: 058
     Dates: start: 20071001
  4. HUMALO (INSULIN LISPRO) [Concomitant]

REACTIONS (5)
  - BLOOD GLUCOSE DECREASED [None]
  - BLOOD GLUCOSE INCREASED [None]
  - FEELING JITTERY [None]
  - FLIGHT OF IDEAS [None]
  - HEART RATE INCREASED [None]
